FAERS Safety Report 21727486 (Version 2)
Quarter: 2024Q1

REPORT INFORMATION
  Report Type: Spontaneous
  Country: US (occurrence: US)
  Receive Date: 20221214
  Receipt Date: 20240201
  Transmission Date: 20240410
  Serious: No
  Sender: FDA-Public Use
  Company Number: US-ALVOGEN-2022-ALVOGEN-120880

PATIENT
  Sex: Female

DRUGS (1)
  1. FENTANYL [Suspect]
     Active Substance: FENTANYL\FENTANYL CITRATE
     Indication: Migraine

REACTIONS (8)
  - Breakthrough pain [Unknown]
  - Diarrhoea [Unknown]
  - Hot flush [Unknown]
  - Hyperhidrosis [Unknown]
  - Device adhesion issue [Unknown]
  - Device malfunction [Unknown]
  - Off label use [Unknown]
  - Device delivery system issue [Unknown]
